FAERS Safety Report 4923417-5 (Version None)
Quarter: 2006Q1

REPORT INFORMATION
  Report Type: 
  Country: None (occurrence: None)
  Receive Date: 20060227
  Receipt Date: 20060221
  Transmission Date: 20060701
  Serious: Yes (Hospitalization, Other)
  Sender: FDA-Public Use
  Company Number: US-JNJFOC-20060204982

PATIENT
  Sex: Female
  Weight: 58.97 kg

DRUGS (1)
  1. ORTHO EVRA [Suspect]
     Dates: start: 20060107, end: 20060122

REACTIONS (2)
  - ABSCESS [None]
  - THROMBOSIS [None]
